FAERS Safety Report 21532425 (Version 1)
Quarter: 2022Q4

REPORT INFORMATION
  Report Type: Spontaneous
  Country: US (occurrence: US)
  Receive Date: 20221101
  Receipt Date: 20221101
  Transmission Date: 20230113
  Serious: Yes (Hospitalization, Other)
  Sender: FDA-Public Use
  Company Number: US-GILEAD-2022-0602885

PATIENT
  Age: 69 Year
  Sex: Male

DRUGS (16)
  1. EPCLUSA [Suspect]
     Active Substance: SOFOSBUVIR\VELPATASVIR
     Indication: Chronic hepatitis C
     Dosage: 1 DOSAGE FORM, QD
     Route: 048
  2. VITAMINS [Concomitant]
     Active Substance: VITAMINS
  3. ASIAN GINSENG [Concomitant]
     Active Substance: ASIAN GINSENG
  4. ASPIRIN [Concomitant]
     Active Substance: ASPIRIN
  5. SUTAB [Concomitant]
     Active Substance: MAGNESIUM SULFATE\POTASSIUM CHLORIDE\SODIUM SULFATE
  6. ANORO ELLIPTA [Concomitant]
     Active Substance: UMECLIDINIUM BROMIDE\VILANTEROL TRIFENATATE
  7. CARVEDILOL [Concomitant]
     Active Substance: CARVEDILOL
  8. CLOPIDOGREL [Concomitant]
     Active Substance: CLOPIDOGREL BISULFATE
  9. FUROSEMIDE [Concomitant]
     Active Substance: FUROSEMIDE
  10. GABAPENTIN [Concomitant]
     Active Substance: GABAPENTIN
  11. HYOSCYAMINE [Concomitant]
     Active Substance: HYOSCYAMINE
  12. LOSARTAN [Concomitant]
     Active Substance: LOSARTAN
  13. PANTOPRAZOLE [Concomitant]
     Active Substance: PANTOPRAZOLE
  14. POTASSIUM [Concomitant]
     Active Substance: POTASSIUM
  15. SUCRALFATE [Concomitant]
     Active Substance: SUCRALFATE
  16. TOUJEO [Concomitant]
     Active Substance: INSULIN GLARGINE

REACTIONS (3)
  - Muscle strain [Unknown]
  - Kidney infection [Unknown]
  - Gait inability [Not Recovered/Not Resolved]
